FAERS Safety Report 4761750-0 (Version None)
Quarter: 2005Q3

REPORT INFORMATION
  Report Type: 
  Country: None (occurrence: None)
  Receive Date: 20050831
  Receipt Date: 20050727
  Transmission Date: 20060218
  Serious: No
  Sender: FDA-Public Use
  Company Number: PHEH2005US08372

PATIENT
  Age: 70 Year
  Sex: Female

DRUGS (1)
  1. ENABLEX [Suspect]
     Indication: HYPERTONIC BLADDER

REACTIONS (3)
  - DRUG INEFFECTIVE [None]
  - STENT REMOVAL [None]
  - URINARY INCONTINENCE [None]
